FAERS Safety Report 7552092-9 (Version None)
Quarter: 2011Q2

REPORT INFORMATION
  Report Type: 
  Country: None (occurrence: None)
  Receive Date: 20110609
  Receipt Date: 20110525
  Transmission Date: 20111010
  Serious: Yes (Other)
  Sender: FDA-Public Use
  Company Number: AUR-APL-2011-01886

PATIENT
  Sex: Male
  Weight: 101 kg

DRUGS (15)
  1. CLOBETASOL PROPIONATE [Concomitant]
  2. ASPIRIN [Concomitant]
  3. NEBIVOLOL HCL [Concomitant]
  4. ROSUVASTATIN [Concomitant]
  5. TRAMADOL HCL [Concomitant]
  6. MEPERIDINE HCL [Concomitant]
  7. BISOPROLOL FUMARATE [Suspect]
     Indication: ACUTE MYOCARDIAL INFARCTION
     Dosage: 2.5MG-DAILY-ORAL
     Route: 048
     Dates: start: 20081101, end: 20100801
  8. BISOPROLOL FUMARATE [Suspect]
     Indication: MYOCARDIAL ISCHAEMIA
     Dosage: 2.5MG-DAILY-ORAL
     Route: 048
     Dates: start: 20081101, end: 20100801
  9. HYDROMOL [Concomitant]
  10. RAMIPRIL [Suspect]
     Indication: CARDIAC DISORDER
     Dosage: 2.5MG-DAILY-ORAL
     Route: 048
  11. IBUPROFEN [Concomitant]
  12. PERINDOPRIL ERBUMINE [Concomitant]
  13. ACETAMINOPHEN [Concomitant]
  14. PEPPERMINT OIL [Concomitant]
  15. CLOPIDOGREL [Concomitant]

REACTIONS (7)
  - LIGAMENT DISORDER [None]
  - FALL [None]
  - JOINT EFFUSION [None]
  - CONDITION AGGRAVATED [None]
  - GAIT DISTURBANCE [None]
  - OSTEOARTHRITIS [None]
  - PSORIASIS [None]
